FAERS Safety Report 8628284 (Version 3)
Quarter: 2013Q1

REPORT INFORMATION
  Report Type: Spontaneous
  Country: DK (occurrence: DK)
  Receive Date: 20120621
  Receipt Date: 20130110
  Transmission Date: 20140127
  Serious: Yes (Hospitalization)
  Sender: FDA-Public Use
  Company Number: DK-TEVA-343390ISR

PATIENT
  Age: 39 Year
  Sex: Male

DRUGS (1)
  1. FENTANYL [Suspect]
     Indication: PAIN
     Dosage: DOSE: 0.2 MG + 0.3 MG + 2 * 0.05 MG + 0.025 MG, IN TOTAL 0.625 MG
     Route: 042
     Dates: start: 20111010, end: 20111010

REACTIONS (3)
  - Convulsion [Recovered/Resolved]
  - Respiratory arrest [Recovered/Resolved]
  - Epilepsy [Recovered/Resolved]
